FAERS Safety Report 12114090 (Version 1)
Quarter: 2016Q1

REPORT INFORMATION
  Report Type: Report from Study
  Country: US (occurrence: US)
  Receive Date: 20160225
  Receipt Date: 20160225
  Transmission Date: 20160526
  Serious: Yes (Other)
  Sender: FDA-Public Use
  Company Number: US-UCBSA-2016005924

PATIENT
  Age: 7 Year
  Sex: Female

DRUGS (3)
  1. FELBATOL [Concomitant]
     Active Substance: FELBAMATE
     Dosage: INCREASED DOSE
  2. LEVETIRACETAM. [Suspect]
     Active Substance: LEVETIRACETAM
     Indication: PRODUCT USED FOR UNKNOWN INDICATION
     Dosage: UNK
  3. FELBATOL [Concomitant]
     Active Substance: FELBAMATE
     Indication: SEIZURE
     Dosage: UNK

REACTIONS (3)
  - Lennox-Gastaut syndrome [Unknown]
  - Seizure [Unknown]
  - Sleep disorder [Unknown]
